FAERS Safety Report 8030392-6 (Version None)
Quarter: 2012Q1

REPORT INFORMATION
  Report Type: 
  Country: None (occurrence: None)
  Receive Date: 20120109
  Receipt Date: 20120109
  Transmission Date: 20120608
  Serious: Yes (Other)
  Sender: FDA-Public Use
  Company Number: None

PATIENT
  Sex: Female
  Weight: 51.255 kg

DRUGS (1)
  1. DROSPIRENONE AND ETHINYL ESTRADIOL [Suspect]
     Indication: CONTRACEPTION
     Dosage: 1 PILL
     Route: 048
     Dates: start: 20111001, end: 20120101

REACTIONS (5)
  - SUICIDAL IDEATION [None]
  - DEPRESSION [None]
  - DISTURBANCE IN ATTENTION [None]
  - PARAESTHESIA [None]
  - CRYING [None]
